FAERS Safety Report 5518260-2 (Version None)
Quarter: 2007Q4

REPORT INFORMATION
  Report Type: 
  Country: None (occurrence: None)
  Receive Date: 20071115
  Receipt Date: 20071109
  Transmission Date: 20080405
  Serious: Yes (Hospitalization)
  Sender: FDA-Public Use
  Company Number: B0491760A

PATIENT
  Age: 79 Year
  Sex: Female
  Weight: 66 kg

DRUGS (4)
  1. VALTREX [Suspect]
     Indication: HERPES ZOSTER
     Route: 048
     Dates: start: 20071011, end: 20071013
  2. ADALAT [Concomitant]
     Indication: HYPERTENSION
     Dosage: 20MG PER DAY
     Route: 048
     Dates: end: 20071014
  3. PERINDOPRIL ERBUMINE [Concomitant]
     Indication: HYPERTENSION
     Dosage: 4MG PER DAY
     Route: 048
  4. URINORM [Concomitant]
     Indication: HYPERURICAEMIA
     Dosage: 25MG PER DAY
     Route: 048
     Dates: end: 20071014

REACTIONS (5)
  - BLISTER [None]
  - DISCOMFORT [None]
  - ORAL INTAKE REDUCED [None]
  - PYREXIA [None]
  - RENAL FAILURE ACUTE [None]
